FAERS Safety Report 24711563 (Version 1)
Quarter: 2024Q4

REPORT INFORMATION
  Report Type: Spontaneous
  Country: JP (occurrence: JP)
  Receive Date: 20241209
  Receipt Date: 20241209
  Transmission Date: 20250115
  Serious: Yes (Other)
  Sender: ASTELLAS
  Company Number: JP-ASTELLAS-2024-AER-008783

PATIENT
  Age: 9 Decade
  Sex: Male

DRUGS (6)
  1. VYLOY [Suspect]
     Active Substance: ZOLBETUXIMAB-CLZB
     Indication: Gastric cancer
     Dosage: INITIAL: 1280 MG
     Route: 042
     Dates: start: 20240802
  2. VYLOY [Suspect]
     Active Substance: ZOLBETUXIMAB-CLZB
     Dosage: THE SECOND TIME AND FURTHER: 960 MG
     Route: 042
     Dates: start: 20240823
  3. CAPECITABINE [Suspect]
     Active Substance: CAPECITABINE
     Indication: Gastric cancer
     Route: 048
     Dates: start: 20240802
  4. OXALIPLATIN [Suspect]
     Active Substance: OXALIPLATIN
     Indication: Product used for unknown indication
     Dosage: THE FIRST DOSE: 130 MG PER BODY SURFACE AREA
     Route: 042
     Dates: start: 20240802
  5. OXALIPLATIN [Suspect]
     Active Substance: OXALIPLATIN
     Dosage: THE SECOND DOSE: 80 % OF THE DOSE
     Route: 042
     Dates: start: 20240823, end: 20240823
  6. LOCOID [Concomitant]
     Active Substance: HYDROCORTISONE BUTYRATE
     Indication: Rash
     Route: 065

REACTIONS (3)
  - Myelosuppression [Recovered/Resolved]
  - Rash [Recovered/Resolved]
  - Palmar-plantar erythrodysaesthesia syndrome [Not Recovered/Not Resolved]

NARRATIVE: CASE EVENT DATE: 20240913
